FAERS Safety Report 16174188 (Version 1)
Quarter: 2019Q2

REPORT INFORMATION
  Report Type: Spontaneous
  Country: US (occurrence: US)
  Receive Date: 20190408
  Receipt Date: 20190408
  Transmission Date: 20190711
  Serious: Yes (Life-Threatening)
  Sender: FDA-Public Use
  Company Number: None

PATIENT
  Age: 47 Year
  Sex: Female
  Weight: 69.75 kg

DRUGS (2)
  1. OMEPRAZOLE DR 40 MG CAPSULE [Suspect]
     Active Substance: OMEPRAZOLE
     Indication: NAUSEA
     Dosage: ?          QUANTITY:1 CAPSULE(S);?
     Route: 048
     Dates: start: 20190406, end: 20190406
  2. OMEPRAZOLE DR 40 MG CAPSULE [Suspect]
     Active Substance: OMEPRAZOLE
     Indication: GASTROOESOPHAGEAL REFLUX DISEASE
     Dosage: ?          QUANTITY:1 CAPSULE(S);?
     Route: 048
     Dates: start: 20190406, end: 20190406

REACTIONS (5)
  - Throat irritation [None]
  - Burning sensation [None]
  - Swelling face [None]
  - Pruritus [None]
  - Rash erythematous [None]

NARRATIVE: CASE EVENT DATE: 20190406
